FAERS Safety Report 19143727 (Version 1)
Quarter: 2021Q2

REPORT INFORMATION
  Report Type: Spontaneous
  Country: FR (occurrence: FR)
  Receive Date: 20210415
  Receipt Date: 20210415
  Transmission Date: 20210717
  Serious: Yes (Hospitalization)
  Sender: FDA-Public Use
  Company Number: FR-US-PROVELL PHARMACEUTICALS LLC-9222202

PATIENT
  Age: 49 Year
  Sex: Female

DRUGS (2)
  1. LEVOTHYROX [Suspect]
     Active Substance: LEVOTHYROXINE
     Indication: HYPOTHYROIDISM
     Dosage: NEW FORMULATION
     Dates: start: 20170803, end: 20170828
  2. LEVOTHYROX [Suspect]
     Active Substance: LEVOTHYROXINE
     Indication: POSTPARTUM DISORDER
     Dosage: DOSE DECREASED
     Dates: start: 20170829

REACTIONS (7)
  - Fatigue [Unknown]
  - Visual impairment [Unknown]
  - Pain [Unknown]
  - Hypothyroidism [Unknown]
  - Sitting disability [Unknown]
  - Hyperthyroidism [Unknown]
  - Dysstasia [Unknown]

NARRATIVE: CASE EVENT DATE: 2017
